FAERS Safety Report 5536592-9 (Version None)
Quarter: 2007Q4

REPORT INFORMATION
  Report Type: 
  Country: None (occurrence: None)
  Receive Date: 20071204
  Receipt Date: 20071119
  Transmission Date: 20080405
  Serious: Yes (Other)
  Sender: FDA-Public Use
  Company Number: 2007002267

PATIENT
  Sex: Male

DRUGS (8)
  1. TARCEVA [Suspect]
     Dosage: QD; ORAL
     Route: 048
     Dates: start: 20071102
  2. PLAVIX [Concomitant]
  3. LYRICA [Concomitant]
  4. METAMIZOL [Concomitant]
  5. FORTUM (CEFTAZIDIME PENTHAHYDRATE) [Concomitant]
  6. NEXIUM [Concomitant]
  7. FUROSEMIDE [Concomitant]
  8. VERGENTAN (ALIZAPRIDE HYDROCHLORIDE) [Concomitant]

REACTIONS (2)
  - HAEMOPTYSIS [None]
  - SKIN REACTION [None]
